FAERS Safety Report 24925349 (Version 3)
Quarter: 2025Q1

REPORT INFORMATION
  Report Type: Spontaneous
  Country: JP (occurrence: JP)
  Receive Date: 20250204
  Receipt Date: 20250324
  Transmission Date: 20250409
  Serious: Yes (Hospitalization, Other)
  Sender: TAKEDA
  Company Number: JP-TAKEDA-2025TJP001004

PATIENT
  Age: 8 Decade
  Sex: Male

DRUGS (2)
  1. FRUZAQLA [Suspect]
     Active Substance: FRUQUINTINIB
     Indication: Colon cancer
     Dosage: 5 MILLIGRAM, QD
     Dates: start: 20250107
  2. FRUZAQLA [Suspect]
     Active Substance: FRUQUINTINIB

REACTIONS (5)
  - Hypothyroidism [Not Recovered/Not Resolved]
  - Delirium [Recovered/Resolved]
  - Electrolyte imbalance [Not Recovered/Not Resolved]
  - Fatigue [Not Recovered/Not Resolved]
  - Decreased appetite [Not Recovered/Not Resolved]

NARRATIVE: CASE EVENT DATE: 20250121
